FAERS Safety Report 5064804-7 (Version None)
Quarter: 2006Q3

REPORT INFORMATION
  Report Type: 
  Country: None (occurrence: None)
  Receive Date: 20060728
  Receipt Date: 20051124
  Transmission Date: 20061208
  Serious: Yes (Death, Other)
  Sender: FDA-Public Use
  Company Number: PHNU2005DE03871

PATIENT
  Age: 77 Year
  Sex: Male

DRUGS (6)
  1. ZOMETA [Suspect]
     Indication: PROSTATE CANCER METASTATIC
     Dosage: 4 MG, QMO
     Route: 042
     Dates: start: 20030901, end: 20051027
  2. RADIOTHERAPY [Concomitant]
     Indication: METASTASES TO BONE
     Dosage: UP TO 50 GY
     Route: 061
     Dates: start: 20040323, end: 20040401
  3. RADIOTHERAPY [Concomitant]
     Dosage: UP TO 36 IU
     Route: 061
     Dates: start: 20040218, end: 20040311
  4. DOCETAXEL [Concomitant]
     Dosage: 75 MG/M2, UNK
     Route: 065
     Dates: start: 20040921
  5. DOCETAXEL [Concomitant]
     Dosage: 6 CYCLES OF 35 MG/M2
     Route: 065
     Dates: start: 20041102, end: 20050405
  6. DEXAMETHASONE TAB [Concomitant]
     Dosage: 8 MG GRADUALLY DECREASED
     Route: 065

REACTIONS (7)
  - BIOPSY SITE UNSPECIFIED ABNORMAL [None]
  - DEATH [None]
  - EXCESSIVE GRANULATION TISSUE [None]
  - OSTEOLYSIS [None]
  - OSTEONECROSIS [None]
  - TOOTH EXTRACTION [None]
  - X-RAY DENTAL [None]
